FAERS Safety Report 13746139 (Version 1)
Quarter: 2017Q3

REPORT INFORMATION
  Report Type: Spontaneous
  Country: US (occurrence: US)
  Receive Date: 20170712
  Receipt Date: 20170712
  Transmission Date: 20171127
  Serious: No
  Sender: FDA-Public Use
  Company Number: None

PATIENT
  Age: 64 Year
  Sex: Female
  Weight: 90 kg

DRUGS (15)
  1. SYNTHROID [Concomitant]
     Active Substance: LEVOTHYROXINE SODIUM
  2. OXYBUTIN [Concomitant]
     Active Substance: OXYBUTYNIN
  3. CALCIUM WITH  D3 [Concomitant]
  4. PROTONIX [Concomitant]
     Active Substance: PANTOPRAZOLE SODIUM
  5. LYCOPENE [Concomitant]
     Active Substance: LYCOPENE
  6. COQ10 [Concomitant]
     Active Substance: UBIDECARENONE
  7. EZETIMIBE GENERIC ZETIA [Suspect]
     Active Substance: EZETIMIBE
     Indication: HYPERCHOLESTEROLAEMIA
     Dosage: ?          OTHER STRENGTH:MG;QUANTITY:1 TABLET(S);?
     Route: 048
     Dates: start: 20170705, end: 20170710
  8. CENTRUM [Concomitant]
     Active Substance: VITAMINS
  9. CRANBERRY. [Concomitant]
     Active Substance: CRANBERRY
  10. HORSE CHESTNUT [Concomitant]
     Active Substance: HORSE CHESTNUT
  11. VAGI-FEM [Concomitant]
  12. QUERCETIN [Concomitant]
     Active Substance: QUERCETIN
  13. LUTIEN [Concomitant]
  14. TUMERIC [Concomitant]
     Active Substance: HERBALS\TURMERIC
  15. GLUCOSAMINE/CHONDROITIN /08437701/ [Concomitant]
     Active Substance: CHONDROITIN SULFATE (BOVINE)\GLUCOSAMINE SULFATE

REACTIONS (5)
  - Chills [None]
  - Rash [None]
  - Oropharyngeal pain [None]
  - Rash vesicular [None]
  - Pyrexia [None]

NARRATIVE: CASE EVENT DATE: 20170708
